FAERS Safety Report 9156682 (Version 2)
Quarter: 2013Q1

REPORT INFORMATION
  Report Type: Spontaneous
  Country: US (occurrence: None)
  Receive Date: 20130215
  Receipt Date: 20130319
  Transmission Date: 20140127
  Serious: Yes (Other)
  Sender: FDA-Public Use
  Company Number: CIO13006337

PATIENT
  Age: 39 Year
  Sex: Female

DRUGS (1)
  1. NYQUIL COLD AND FLU [Suspect]
     Indication: INFLUENZA
     Route: 048
     Dates: start: 20130131, end: 20130131

REACTIONS (11)
  - Loss of consciousness [None]
  - Feeling abnormal [None]
  - Fatigue [None]
  - Fall [None]
  - Laceration [None]
  - Skin injury [None]
  - Head injury [None]
  - Contusion [None]
  - Hangover [None]
  - Fatigue [None]
  - Cognitive disorder [None]
